FAERS Safety Report 6772619-4 (Version None)
Quarter: 2010Q2

REPORT INFORMATION
  Report Type: 
  Country: None (occurrence: None)
  Receive Date: 20100616
  Receipt Date: 20090903
  Transmission Date: 20101027
  Serious: No
  Sender: FDA-Public Use
  Company Number: US-ASTRAZENECA-2009SE11490

PATIENT
  Age: 28065 Day
  Sex: Female

DRUGS (5)
  1. PULMICORT RESPULES [Suspect]
     Indication: OSTEOPOROSIS
     Dosage: 0.5 MG/ML
     Route: 055
  2. BROVANA [Concomitant]
  3. HIGH BLOOD PRESSURE MEDICINE [Concomitant]
     Indication: HYPERTENSION
  4. ALBUTEROL [Concomitant]
  5. OXYGEN [Concomitant]

REACTIONS (2)
  - COUGH [None]
  - DYSPNOEA [None]
